FAERS Safety Report 9119869 (Version 2)
Quarter: 2013Q2

REPORT INFORMATION
  Report Type: Spontaneous
  Country: CN (occurrence: CN)
  Receive Date: 20130226
  Receipt Date: 20130405
  Transmission Date: 20140414
  Serious: Yes (Disabling, Other)
  Sender: FDA-Public Use
  Company Number: CN-ASTRAZENECA-2013SE10712

PATIENT
  Age: 92 Year
  Sex: Female

DRUGS (6)
  1. NEXIUM [Suspect]
     Indication: GASTRIC HAEMORRHAGE
     Route: 048
     Dates: start: 201111
  2. NEXIUM [Suspect]
     Indication: GASTRIC HAEMORRHAGE
     Route: 048
     Dates: start: 201206
  3. MARZULENE-S [Concomitant]
     Indication: GASTRITIS
     Dosage: THREE SACKS TID
     Route: 048
  4. MARZULENE-S [Concomitant]
     Indication: GASTRIC ULCER
     Dosage: THREE SACKS TID
     Route: 048
  5. ITOPRIDE HYDROCHLORIDE [Concomitant]
     Indication: GASTROINTESTINAL DISORDER
     Route: 048
  6. MALIC ACID CHLORIDE BOBBI LEE [Concomitant]
     Indication: GASTROOESOPHAGEAL REFLUX DISEASE
     Route: 048

REACTIONS (10)
  - Adverse event [Recovered/Resolved]
  - Fatigue [Recovered/Resolved]
  - Abnormal behaviour [Recovered/Resolved]
  - Blindness [Not Recovered/Not Resolved]
  - Constipation [Recovered/Resolved]
  - Depression [Recovered/Resolved]
  - Thrombocytopenia [Recovered/Resolved]
  - Agitation [Recovered/Resolved]
  - Hypersensitivity [Recovered/Resolved]
  - Pruritus [Recovered/Resolved]
